FAERS Safety Report 6688319-5 (Version None)
Quarter: 2010Q2

REPORT INFORMATION
  Report Type: 
  Country: None (occurrence: None)
  Receive Date: 20100420
  Receipt Date: 20100412
  Transmission Date: 20101027
  Serious: Yes (Other)
  Sender: FDA-Public Use
  Company Number: FR-BAYER-201022036GPV

PATIENT
  Age: 37 Year
  Sex: Female

DRUGS (13)
  1. IZILOX [Suspect]
     Indication: INFECTION PROPHYLAXIS
     Dosage: TOTAL DAILY DOSE: 400 MG  UNIT DOSE: 400 MG
     Route: 048
     Dates: start: 20081211, end: 20090101
  2. ACUPAN [Suspect]
     Indication: DRUG USE FOR UNKNOWN INDICATION
     Route: 042
     Dates: start: 20081202, end: 20081211
  3. ZOPHREN [Suspect]
     Indication: ACUTE MYELOID LEUKAEMIA
     Dosage: AS USED: 8/4 MG/ML
     Route: 042
     Dates: start: 20081015, end: 20090113
  4. CYTARABINE [Suspect]
     Indication: ACUTE MYELOID LEUKAEMIA
     Route: 042
     Dates: start: 20081015, end: 20090113
  5. NOXAFIL [Suspect]
     Indication: DRUG USE FOR UNKNOWN INDICATION
     Route: 048
     Dates: start: 20081201, end: 20081208
  6. AMIKIN [Concomitant]
  7. VANCOMYCIN [Concomitant]
  8. BACTRIM [Concomitant]
  9. LUTENYL [Concomitant]
  10. ZELITREX [Concomitant]
  11. OMEPRAZOLE [Concomitant]
  12. GRANOCYTE [Concomitant]
  13. TAZOCILLINE [Concomitant]

REACTIONS (3)
  - BRADYCARDIA [None]
  - PALPITATIONS [None]
  - VENTRICULAR EXTRASYSTOLES [None]
